FAERS Safety Report 15203019 (Version 18)
Quarter: 2022Q3

REPORT INFORMATION
  Report Type: Report from Study
  Country: US (occurrence: US)
  Receive Date: 20180726
  Receipt Date: 20220912
  Transmission Date: 20221027
  Serious: Yes (Hospitalization, Other)
  Sender: FDA-Public Use
  Company Number: US-TAKEDA-2018MPI009754

PATIENT
  Age: 75 Year
  Sex: Female
  Weight: 52.154 kg

DRUGS (11)
  1. IXAZOMIB [Suspect]
     Active Substance: IXAZOMIB
     Indication: Plasma cell myeloma in remission
     Dosage: 2.3 MILLIGRAM
     Route: 048
     Dates: start: 20180703
  2. IXAZOMIB [Suspect]
     Active Substance: IXAZOMIB
     Indication: Bone cancer
     Dosage: 3 MILLIGRAM
     Route: 048
     Dates: start: 20180820, end: 201810
  3. IXAZOMIB [Suspect]
     Active Substance: IXAZOMIB
     Dosage: 2.3 MILLIGRAM
     Route: 048
     Dates: start: 201801
  4. IXAZOMIB [Suspect]
     Active Substance: IXAZOMIB
     Dosage: 3 MILLIGRAM
     Route: 065
     Dates: start: 20220504
  5. BORTEZOMIB [Suspect]
     Active Substance: BORTEZOMIB
     Indication: Plasma cell myeloma
     Dosage: UNK, Q2WEEKS
     Route: 065
     Dates: start: 201609, end: 201806
  6. ACYCLOVIR [Concomitant]
     Active Substance: ACYCLOVIR
     Dosage: UNK, BID
     Route: 065
  7. SYNTHROID [Concomitant]
     Active Substance: LEVOTHYROXINE SODIUM
     Indication: Product used for unknown indication
     Dosage: UNK
     Route: 065
  8. REVLIMID [Concomitant]
     Active Substance: LENALIDOMIDE
     Indication: Product used for unknown indication
     Dosage: UNK
     Route: 065
  9. VITAMIN B12 [Concomitant]
     Active Substance: CYANOCOBALAMIN
     Dosage: UNK
     Route: 065
  10. ZOMETA [Concomitant]
     Active Substance: ZOLEDRONIC ACID
     Dosage: UNK, 3/MONTH
     Route: 065
  11. LEVOTHYROXINE [Concomitant]
     Active Substance: LEVOTHYROXINE
     Dosage: UNK
     Route: 065

REACTIONS (23)
  - Plasma cell myeloma [Unknown]
  - Upper limb fracture [Recovered/Resolved]
  - Bone pain [Unknown]
  - Cognitive disorder [Unknown]
  - Memory impairment [Unknown]
  - Gait disturbance [Unknown]
  - Ageusia [Unknown]
  - Muscle spasms [Unknown]
  - Anorectal discomfort [Unknown]
  - Anal pruritus [Unknown]
  - Weight decreased [Unknown]
  - Pruritus genital [Unknown]
  - Genital burning sensation [Unknown]
  - Decreased appetite [Unknown]
  - Vomiting [Unknown]
  - Bronchitis [Unknown]
  - Blood potassium decreased [Unknown]
  - Dyspnoea [Unknown]
  - Asthenia [Unknown]
  - Fall [Recovered/Resolved]
  - Hordeolum [Unknown]
  - Product dose omission issue [Recovered/Resolved]
  - Off label use [Unknown]

NARRATIVE: CASE EVENT DATE: 20180714
